FAERS Safety Report 6124223-9 (Version None)
Quarter: 2009Q1

REPORT INFORMATION
  Report Type: 
  Country: None (occurrence: None)
  Receive Date: 20090317
  Receipt Date: 20090302
  Transmission Date: 20090719
  Serious: Yes (Death)
  Sender: FDA-Public Use
  Company Number: 000472

PATIENT
  Sex: Male

DRUGS (2)
  1. ALPRAZOLAM [Suspect]
  2. DEXTROMETHORPHAN HYDROBROMIDE [Suspect]

REACTIONS (5)
  - ACCIDENTAL DEATH [None]
  - DRUG TOXICITY [None]
  - PULMONARY OEDEMA [None]
  - SNORING [None]
  - UNRESPONSIVE TO STIMULI [None]
